FAERS Safety Report 5486759-3 (Version None)
Quarter: 2007Q4

REPORT INFORMATION
  Report Type: 
  Country: None (occurrence: None)
  Receive Date: 20071012
  Receipt Date: 20071012
  Transmission Date: 20080405
  Serious: Yes (Other)
  Sender: FDA-Public Use
  Company Number: None

PATIENT
  Sex: Female
  Weight: 70.3075 kg

DRUGS (1)
  1. CIPRO [Suspect]
     Indication: PNEUMONIA
     Dosage: 400MG BID IV
     Route: 042
     Dates: start: 20070923, end: 20070930

REACTIONS (1)
  - HALLUCINATION [None]
